FAERS Safety Report 12759475 (Version 1)
Quarter: 2016Q3

REPORT INFORMATION
  Report Type: Spontaneous
  Country: US (occurrence: US)
  Receive Date: 20160919
  Receipt Date: 20160919
  Transmission Date: 20161109
  Serious: Yes (Disabling, Other)
  Sender: FDA-Public Use
  Company Number: None

PATIENT
  Age: 59 Year
  Sex: Female
  Weight: 78.75 kg

DRUGS (10)
  1. VITAMIN D3 [Concomitant]
     Active Substance: CHOLECALCIFEROL
  2. POTASSIUM [Concomitant]
     Active Substance: POTASSIUM
  3. RED MARINE ALGAE [Concomitant]
  4. CYMBALTA GENERIC [Concomitant]
     Active Substance: DULOXETINE HYDROCHLORIDE
  5. L-LYSINE [Concomitant]
     Active Substance: LYSINE
  6. MOBIC [Concomitant]
     Active Substance: MELOXICAM
  7. PERCOCET [Concomitant]
     Active Substance: ACETAMINOPHEN\OXYCODONE HYDROCHLORIDE
  8. HYDROCHLOROTHIAZIDE 12.5 MG. [Suspect]
     Active Substance: HYDROCHLOROTHIAZIDE
     Indication: POLYURIA
     Route: 048
     Dates: start: 20160829, end: 20160917
  9. CALCIUM IRWIN NATURALS HEART AND CHOLESTEROL SUPPLEMENT IRWIN NATURALS 3 IN 1 JOINT SUPPLEMENT [Concomitant]
  10. ELMIRON [Concomitant]
     Active Substance: PENTOSAN POLYSULFATE SODIUM

REACTIONS (8)
  - Dizziness [None]
  - Blood potassium decreased [None]
  - Vertigo [None]
  - Product quality issue [None]
  - Swelling [None]
  - Nausea [None]
  - Visual impairment [None]
  - Fear [None]

NARRATIVE: CASE EVENT DATE: 20160916
